FAERS Safety Report 10243627 (Version 1)
Quarter: 2014Q2

REPORT INFORMATION
  Report Type: Spontaneous
  Country: US (occurrence: US)
  Receive Date: 20140618
  Receipt Date: 20140618
  Transmission Date: 20141212
  Serious: No
  Sender: FDA-Public Use
  Company Number: US-PFIZER INC-2014160241

PATIENT
  Age: 48 Year
  Sex: Female
  Weight: 87.08 kg

DRUGS (5)
  1. ZITHROMAX [Suspect]
     Indication: PYREXIA
     Dosage: UNK
  2. ZITHROMAX [Suspect]
     Indication: SINUSITIS
  3. FLUCONAZOLE [Suspect]
     Dosage: 100 MG, 1X/DAY
     Dates: start: 2002
  4. ADVAIR [Concomitant]
     Indication: ASTHMA
     Dosage: UNK
  5. MAXAIR [Concomitant]
     Indication: ASTHMA
     Dosage: UNK

REACTIONS (2)
  - Drug ineffective [Unknown]
  - Fungal infection [Unknown]
